FAERS Safety Report 12894794 (Version 1)
Quarter: 2016Q4

REPORT INFORMATION
  Report Type: Spontaneous
  Country: GB (occurrence: GB)
  Receive Date: 20161028
  Receipt Date: 20161028
  Transmission Date: 20170207
  Serious: Yes (Other)
  Sender: FDA-Public Use
  Company Number: GB-MYLANLABS-2016M1046029

PATIENT

DRUGS (1)
  1. CIPROFLOXACIN. [Suspect]
     Active Substance: CIPROFLOXACIN
     Indication: GASTROENTERITIS
     Dosage: 500MG EVERY 12H
     Route: 048

REACTIONS (3)
  - Toxicity to various agents [Unknown]
  - Clostridium difficile colitis [Unknown]
  - Cytopenia [Unknown]
